FAERS Safety Report 8504342-X (Version None)
Quarter: 2012Q3

REPORT INFORMATION
  Report Type: 
  Country: None (occurrence: None)
  Receive Date: 20120711
  Receipt Date: 20120706
  Transmission Date: 20120928
  Serious: Yes (Hospitalization)
  Sender: FDA-Public Use
  Company Number: PHHY2012GB058316

PATIENT
  Age: 62 Year
  Sex: Female
  Weight: 91.3 kg

DRUGS (6)
  1. ATORVASTATIN [Suspect]
     Dosage: 80 MG, QD
     Route: 048
     Dates: start: 20120612, end: 20120616
  2. OMEPRAZOLE [Concomitant]
     Dosage: 20 MG, QD
     Route: 048
     Dates: start: 20120501
  3. RAMIPRIL [Concomitant]
     Dosage: 10 MG, QD
     Route: 048
     Dates: start: 20120502
  4. AMLODIPINE [Concomitant]
     Dosage: 5 MG, QD
     Route: 048
     Dates: start: 20110106
  5. CLOPIDOGREL [Concomitant]
     Dosage: 75 MG, QD
     Route: 048
     Dates: start: 20120319
  6. BISOPROLOL FUMARATE [Concomitant]
     Dosage: 1.25 MG, QD
     Route: 048
     Dates: start: 20120419

REACTIONS (1)
  - BLOOD PRESSURE INCREASED [None]
